FAERS Safety Report 5851714-8 (Version None)
Quarter: 2008Q3

REPORT INFORMATION
  Report Type: 
  Country: None (occurrence: None)
  Receive Date: 20080820
  Receipt Date: 20080806
  Transmission Date: 20090109
  Serious: No
  Sender: FDA-Public Use
  Company Number: US-BOEHRINGER INGELHEIM GMBH, GERMANY-2008-BP-12555BP

PATIENT
  Sex: Female

DRUGS (3)
  1. SPIRIVA [Suspect]
     Indication: COLLAPSE OF LUNG
     Route: 055
     Dates: start: 20060101, end: 20080806
  2. SPIRIVA [Suspect]
     Indication: EMPHYSEMA
  3. ADVIL [Concomitant]
     Indication: HEADACHE

REACTIONS (6)
  - FUNGAL SKIN INFECTION [None]
  - PSORIASIS [None]
  - RASH [None]
  - SCAB [None]
  - SKIN DISORDER [None]
  - SKIN EXFOLIATION [None]
